FAERS Safety Report 13119927 (Version 3)
Quarter: 2017Q1

REPORT INFORMATION
  Report Type: Report from Study
  Country: US (occurrence: US)
  Receive Date: 20170117
  Receipt Date: 20170320
  Transmission Date: 20170428
  Serious: Yes (Other)
  Sender: FDA-Public Use
  Company Number: PHEH2017US000935

PATIENT
  Sex: Male

DRUGS (1)
  1. COSENTYX [Suspect]
     Active Substance: SECUKINUMAB
     Indication: ACNE
     Dosage: 300 MG, QW
     Route: 058
     Dates: start: 20161216

REACTIONS (3)
  - Drug ineffective [Unknown]
  - Staphylococcal skin infection [Recovering/Resolving]
  - Product use issue [Unknown]
